FAERS Safety Report 5835462-6 (Version None)
Quarter: 2008Q3

REPORT INFORMATION
  Report Type: 
  Country: None (occurrence: None)
  Receive Date: 20080806
  Receipt Date: 20080725
  Transmission Date: 20090109
  Serious: Yes (Death, Hospitalization)
  Sender: FDA-Public Use
  Company Number: FR-AVENTIS-200216157GDDC

PATIENT
  Sex: Male
  Weight: 81 kg

DRUGS (4)
  1. INDAPAMIDE [Suspect]
     Indication: ESSENTIAL HYPERTENSION
     Dosage: DOSE: 1 DF
     Route: 048
     Dates: start: 20010529, end: 20030123
  2. ENALAPRIL MALEATE [Concomitant]
     Dosage: DOSE: UNK
     Dates: start: 20030715
  3. VERAPAMIL [Concomitant]
     Dosage: DOSE: UNK
     Dates: start: 20040224
  4. TERTENSIF [Concomitant]
     Dates: start: 20040824

REACTIONS (2)
  - CARDIAC FAILURE CONGESTIVE [None]
  - CEREBRAL ISCHAEMIA [None]
